FAERS Safety Report 19037784 (Version 5)
Quarter: 2023Q4

REPORT INFORMATION
  Report Type: Report from Study
  Country: AT (occurrence: AT)
  Receive Date: 20210322
  Receipt Date: 20231030
  Transmission Date: 20240110
  Serious: Yes (Other)
  Sender: FDA-Public Use
  Company Number: AT-AMGEN-AUTSP2021040350

PATIENT
  Age: 79 Year
  Sex: Female
  Weight: 48 kg

DRUGS (60)
  1. DENOSUMAB [Suspect]
     Active Substance: DENOSUMAB
     Indication: HER2 positive breast cancer
     Dosage: 120 MILLIGRAM, Q4WK
     Route: 058
     Dates: start: 20180817
  2. TRASTUZUMAB [Suspect]
     Active Substance: TRASTUZUMAB
     Indication: Breast cancer
     Dosage: 276 MILLIGRAM, QWK
     Route: 065
     Dates: start: 20180810, end: 20180831
  3. TRASTUZUMAB [Suspect]
     Active Substance: TRASTUZUMAB
     Dosage: 384 MILLIGRAM, Q3WK (MOST RECENT DOSE PRIOR TO THE EVENT: 19/AUG/2019)
     Route: 042
     Dates: start: 20180810, end: 20180831
  4. TRASTUZUMAB [Suspect]
     Active Substance: TRASTUZUMAB
     Dosage: 384 MILLIGRAM, Q3WK
     Route: 042
     Dates: start: 20180928, end: 20180928
  5. TRASTUZUMAB [Suspect]
     Active Substance: TRASTUZUMAB
     Dosage: 276 MILLIGRAM, QWK
     Route: 065
     Dates: start: 20180928, end: 20180928
  6. TRASTUZUMAB [Suspect]
     Active Substance: TRASTUZUMAB
     Dosage: 276 MILLIGRAM, Q3WK
     Route: 042
     Dates: start: 20181019
  7. TRASTUZUMAB [Suspect]
     Active Substance: TRASTUZUMAB
     Dosage: 1380 MILLIGRAM
     Route: 065
  8. PERTUZUMAB [Suspect]
     Active Substance: PERTUZUMAB
     Indication: HER2 positive breast cancer
     Dosage: 840 MILLIGRAM, Q3WK/ MOST RECENT DOSE PRIOR TO THE EVENT: 31/AUG/2018
     Route: 042
     Dates: start: 20180810, end: 20180810
  9. PERTUZUMAB [Suspect]
     Active Substance: PERTUZUMAB
     Indication: Breast cancer
     Dosage: 840 MILLIGRAM, Q3WK
     Route: 042
     Dates: start: 20180831
  10. LETROZOLE [Suspect]
     Active Substance: LETROZOLE
     Indication: HER2 positive breast cancer
     Dosage: 3 MILLIGRAM, QD
     Route: 048
     Dates: start: 20181029
  11. LETROZOLE [Suspect]
     Active Substance: LETROZOLE
     Indication: Breast cancer
     Dosage: 2.5 MILLIGRAM, QD/ ON 13/JUN/2019, MOST RECENT DOSE
     Route: 048
     Dates: start: 20190613
  12. ABRAXANE [Suspect]
     Active Substance: PACLITAXEL
     Indication: HER2 positive breast cancer
     Dosage: 113.69 MILLIGRAM, QWK/ MOST RECENT DOSE 14/SEP/2018
     Route: 042
     Dates: start: 20180810
  13. ABRAXANE [Suspect]
     Active Substance: PACLITAXEL
     Indication: Breast cancer
     Dosage: 142.11 MILLIGRAM, QWK
     Route: 042
     Dates: start: 20180928, end: 20181005
  14. ABRAXANE [Suspect]
     Active Substance: PACLITAXEL
     Dosage: 142.11 MILLIGRAM, QWK
     Route: 042
     Dates: start: 20191019
  15. TAMOXIFEN [Suspect]
     Active Substance: TAMOXIFEN
     Indication: HER2 positive breast cancer
     Dosage: 20 MILLIGRAM/ LAST DOSE ADMINISTERED: 27-AUG-2019
     Route: 048
     Dates: start: 20190819
  16. TAMOXIFEN [Suspect]
     Active Substance: TAMOXIFEN
     Indication: Breast cancer
  17. PACLITAXEL [Suspect]
     Active Substance: PACLITAXEL
     Indication: Breast cancer
     Dosage: 113.69 MILLIGRAM, EVERY 1 WEEK
     Route: 065
     Dates: start: 20180810
  18. PACLITAXEL [Suspect]
     Active Substance: PACLITAXEL
     Dosage: 113.69 MILLIGRAM, EVERY 1 WEEK (MOST RECENT DOSE 4/SEP/2018)
     Route: 042
     Dates: start: 20180914
  19. PACLITAXEL [Suspect]
     Active Substance: PACLITAXEL
     Indication: HER2 positive breast cancer
     Dosage: 142.11 MG, EVERY 1 WEEK (MOST RECENT DOSE PRIOR TO THE EVENT: 19/OCT/2018)
     Route: 042
     Dates: start: 20180928
  20. PACLITAXEL [Suspect]
     Active Substance: PACLITAXEL
     Indication: Breast cancer
  21. ADO-TRASTUZUMAB EMTANSINE [Suspect]
     Active Substance: ADO-TRASTUZUMAB EMTANSINE
     Indication: HER2 positive breast cancer
     Dosage: 154 MILLIGRAM, Q3WK/ LAST DOSE ADMINISTERED: 04-JUL-2019
     Route: 042
     Dates: start: 20190704
  22. ADO-TRASTUZUMAB EMTANSINE [Suspect]
     Active Substance: ADO-TRASTUZUMAB EMTANSINE
     Indication: Breast cancer
  23. HERCEPTIN [Suspect]
     Active Substance: TRASTUZUMAB
     Indication: HER2 positive breast cancer
     Dosage: 384 MILLIGRAM, Q3WK;MOST RECENT DOSE PRIOR TO THE EVENT: 19/AUG/2019
     Route: 042
     Dates: start: 20180810, end: 20180810
  24. HERCEPTIN [Suspect]
     Active Substance: TRASTUZUMAB
     Dosage: 384 MILLIGRAM, Q3WK
     Route: 042
     Dates: start: 20180928, end: 20180928
  25. HERCEPTIN [Suspect]
     Active Substance: TRASTUZUMAB
     Dosage: 276 MILLIGRAM, Q3WK
     Route: 042
     Dates: start: 20181019, end: 20181019
  26. PALBOCICLIB [Suspect]
     Active Substance: PALBOCICLIB
     Indication: HER2 positive breast cancer
     Dosage: 125 MILLIGRAM/ MOST RECENT DOSE 18/OCT/2019
     Route: 048
     Dates: start: 20190919
  27. PALBOCICLIB [Suspect]
     Active Substance: PALBOCICLIB
     Indication: Breast cancer
     Dosage: 125 MILLIGRAM (MOST RECENT DOSE 18/OCT/2019)
     Route: 048
     Dates: start: 20191018
  28. FULVESTRANT [Suspect]
     Active Substance: FULVESTRANT
     Indication: HER2 positive breast cancer
     Dosage: 500 MILLIGRAM, QWK
     Route: 030
     Dates: start: 20190919
  29. FULVESTRANT [Suspect]
     Active Substance: FULVESTRANT
     Indication: Breast cancer
     Dosage: 4000 MILLIGRAM
     Route: 065
  30. FULVESTRANT [Suspect]
     Active Substance: FULVESTRANT
     Dosage: 500 MILLIGRAM, Q4WK
     Route: 030
     Dates: start: 20190919
  31. LASIX [Concomitant]
     Active Substance: FUROSEMIDE
     Indication: Oedema peripheral
     Dosage: UNK
     Dates: start: 20191106, end: 20191115
  32. SODIUM PICOSULFATE [Concomitant]
     Active Substance: SODIUM PICOSULFATE
     Indication: Product used for unknown indication
     Dosage: UNK
     Dates: start: 20191115
  33. CAPHOSOL [CALCIUM CHLORIDE;SODIUM CHLORIDE;SODIUM PHOSPHATE DIBASIC;SO [Concomitant]
     Indication: Mucosal inflammation
     Dosage: UNK
     Dates: start: 20180921
  34. CEOLAT [Concomitant]
     Indication: Product used for unknown indication
     Dosage: UNK
     Dates: start: 20191115
  35. CEOLAT [Concomitant]
     Dosage: UNK
     Dates: start: 20181115
  36. DEXIBUPROFEN [Concomitant]
     Active Substance: DEXIBUPROFEN
     Indication: Osteonecrosis of jaw
     Dosage: UNK
     Route: 065
     Dates: start: 20190725, end: 20191015
  37. MORPHINE SULFATE [Concomitant]
     Active Substance: MORPHINE SULFATE
     Indication: Dyspnoea
     Dosage: UNK
     Dates: start: 20191111
  38. KONAKION [Concomitant]
     Active Substance: PHYTONADIONE
     Indication: Product used for unknown indication
     Dosage: UNK
     Dates: start: 20191115
  39. LOPERAMIDE HYDROCHLORIDE [Concomitant]
     Active Substance: LOPERAMIDE HYDROCHLORIDE
     Indication: Diarrhoea
     Dosage: UNK
     Route: 065
     Dates: start: 20181127
  40. TRAZODONE HYDROCHLORIDE [Concomitant]
     Active Substance: TRAZODONE HYDROCHLORIDE
     Indication: Product used for unknown indication
     Dosage: UNK
  41. PANTOPRAZOLE SODIUM [Concomitant]
     Active Substance: PANTOPRAZOLE SODIUM
     Indication: Abdominal pain upper
     Dosage: UNK
     Dates: start: 20181109, end: 20191101
  42. METOCLOPRAMIDE HYDROCHLORIDE [Concomitant]
     Active Substance: METOCLOPRAMIDE HYDROCHLORIDE
     Indication: Nausea
     Dosage: UNK
     Dates: start: 20191108, end: 20191115
  43. MYCOSTATIN [Concomitant]
     Active Substance: NYSTATIN
     Indication: Mucosal inflammation
     Dosage: UNK
     Dates: start: 20190819
  44. LORAZEPAM [Concomitant]
     Active Substance: LORAZEPAM
     Indication: Product used for unknown indication
     Dosage: UNK
  45. POLYETHYLENE GLYCOL 3350\POTASSIUM CHLORIDE\SODIUM BICARBONATE\SODIUM [Concomitant]
     Active Substance: POLYETHYLENE GLYCOL 3350\POTASSIUM CHLORIDE\SODIUM BICARBONATE\SODIUM CHLORIDE
     Indication: Product used for unknown indication
     Dosage: UNK
     Dates: start: 20191115
  46. ANTIFLAT [Concomitant]
     Indication: Product used for unknown indication
     Dosage: UNK
     Dates: start: 20181126
  47. CIPROFLOXACIN [Concomitant]
     Active Substance: CIPROFLOXACIN
     Indication: Gastroenteritis radiation
     Dosage: UNK
     Route: 065
     Dates: start: 20181118
  48. TAZOBACTAM [Concomitant]
     Active Substance: TAZOBACTAM
     Indication: Infection
     Dosage: UNK
     Dates: start: 20191102, end: 20191113
  49. MEFENAMIC ACID [Concomitant]
     Active Substance: MEFENAMIC ACID
     Indication: Arthralgia
     Dosage: UNK
     Dates: start: 20180914
  50. NOVALGINA [Concomitant]
     Active Substance: ACETAMINOPHEN\CAFFEINE
     Indication: Product used for unknown indication
     Dosage: UNK
     Dates: start: 20181126, end: 20191103
  51. AVELOX [Concomitant]
     Active Substance: MOXIFLOXACIN HYDROCHLORIDE
     Indication: Osteonecrosis of jaw
     Dosage: UNK
     Dates: start: 20190919, end: 20191101
  52. DEXAMETHASONE [Concomitant]
     Active Substance: DEXAMETHASONE
     Indication: Product used for unknown indication
     Dosage: UNK
     Dates: start: 20191115
  53. POLYETHYLENE GLYCOLS [Concomitant]
     Active Substance: POLYETHYLENE GLYCOLS
     Indication: Product used for unknown indication
  54. LACTULOSE [Concomitant]
     Active Substance: LACTULOSE
     Dosage: UNK
     Dates: start: 20191115
  55. DEXABENE [Concomitant]
     Dosage: UNK
  56. LAFENE [Concomitant]
     Dosage: UNK
     Dates: start: 20191115
  57. MORPHINE [Concomitant]
     Active Substance: MORPHINE
     Indication: Dyspnoea
     Dosage: UNK
     Dates: start: 20191111
  58. KYTRIL [Concomitant]
     Active Substance: GRANISETRON HYDROCHLORIDE
     Dosage: UNK
  59. RANITIDINE HYDROCHLORIDE [Concomitant]
     Active Substance: RANITIDINE HYDROCHLORIDE
     Dosage: UNK
  60. FENAKUT [Concomitant]
     Dosage: UNK

REACTIONS (5)
  - Underdose [Unknown]
  - Overdose [Unknown]
  - Ascites [Recovering/Resolving]
  - Neutrophil count decreased [Recovered/Resolved]
  - White blood cell count decreased [Recovered/Resolved]

NARRATIVE: CASE EVENT DATE: 20191004
